FAERS Safety Report 6853692-1 (Version None)
Quarter: 2010Q3

REPORT INFORMATION
  Report Type: 
  Country: None (occurrence: None)
  Receive Date: 20100717
  Receipt Date: 20080122
  Transmission Date: 20110219
  Serious: No
  Sender: FDA-Public Use
  Company Number: US-PFIZER INC-2007105680

PATIENT
  Sex: Female
  Weight: 65.5 kg

DRUGS (8)
  1. CHANTIX [Suspect]
     Indication: SMOKING CESSATION THERAPY
     Dates: start: 20071205
  2. COPAXONE [Concomitant]
     Route: 058
  3. ALL OTHER THERAPEUTIC PRODUCTS [Concomitant]
  4. DIAZEPAM [Concomitant]
  5. DILAUDID [Concomitant]
  6. MS CONTIN [Concomitant]
  7. AMITRIPTYLINE HYDROCHLORIDE [Concomitant]
  8. FLEXERIL [Concomitant]

REACTIONS (7)
  - DRUG DOSE OMISSION [None]
  - FATIGUE [None]
  - MALAISE [None]
  - MYALGIA [None]
  - NEURALGIA [None]
  - PAIN [None]
  - PAIN IN EXTREMITY [None]
